FAERS Safety Report 20476652 (Version 1)
Quarter: 2022Q1

REPORT INFORMATION
  Report Type: Spontaneous
  Country: AE (occurrence: AE)
  Receive Date: 20220215
  Receipt Date: 20220215
  Transmission Date: 20220424
  Serious: Yes (Hospitalization, Other)
  Sender: FDA-Public Use
  Company Number: AE-ALLERGAN-2205488US

PATIENT
  Sex: Male

DRUGS (4)
  1. TESTOSTERONE [Suspect]
     Active Substance: TESTOSTERONE
     Indication: Supplementation therapy
  2. DROMOSTANOLONE [Suspect]
     Active Substance: DROMOSTANOLONE
     Indication: Supplementation therapy
  3. STANOZOLOL [Suspect]
     Active Substance: STANOZOLOL
     Indication: Supplementation therapy
  4. LEVOCETIRIZINE [Concomitant]
     Active Substance: LEVOCETIRIZINE
     Indication: Hypersensitivity

REACTIONS (3)
  - Drug-induced liver injury [Recovering/Resolving]
  - Nephropathy [Recovering/Resolving]
  - Acute kidney injury [Recovering/Resolving]
